FAERS Safety Report 12156878 (Version 3)
Quarter: 2016Q1

REPORT INFORMATION
  Report Type: Spontaneous
  Country: JP (occurrence: JP)
  Receive Date: 20160307
  Receipt Date: 20160322
  Transmission Date: 20160526
  Serious: Yes (Other)
  Sender: FDA-Public Use
  Company Number: ALJP2016JP000576

PATIENT
  Sex: Female

DRUGS (1)
  1. NEVANAC [Suspect]
     Active Substance: NEPAFENAC
     Indication: PROPHYLAXIS
     Dosage: UNK UNK, TID
     Route: 047

REACTIONS (1)
  - Necrotising scleritis [Recovered/Resolved with Sequelae]

NARRATIVE: CASE EVENT DATE: 2013
